FAERS Safety Report 8410053-1 (Version None)
Quarter: 2012Q2

REPORT INFORMATION
  Report Type: 
  Country: None (occurrence: None)
  Receive Date: 20120605
  Receipt Date: 20120530
  Transmission Date: 20120825
  Serious: Yes (Hospitalization)
  Sender: FDA-Public Use
  Company Number: US-BAYER-2011-070903

PATIENT
  Age: 34 Year
  Sex: Female
  Weight: 101.13 kg

DRUGS (4)
  1. AVANDIA [Concomitant]
     Dosage: 4 MG, 1/2 TABLET BID
     Route: 048
  2. GLUCOVANCE [Concomitant]
     Dosage: ONE, BID
     Route: 048
  3. ASPIRIN [Concomitant]
  4. YASMIN [Suspect]
     Indication: CONTRACEPTION
     Dosage: UNK
     Dates: start: 20050101, end: 20050601

REACTIONS (7)
  - PULMONARY EMBOLISM [None]
  - CHEST PAIN [None]
  - DYSPNOEA [None]
  - DEEP VEIN THROMBOSIS [None]
  - ANHEDONIA [None]
  - INJURY [None]
  - ANXIETY [None]
